FAERS Safety Report 12698339 (Version 1)
Quarter: 2016Q3

REPORT INFORMATION
  Report Type: Spontaneous
  Country: US (occurrence: US)
  Receive Date: 20160830
  Receipt Date: 20160830
  Transmission Date: 20161109
  Serious: No
  Sender: FDA-Public Use
  Company Number: US-JNJFOC-20160808582

PATIENT
  Age: 38 Year
  Sex: Female

DRUGS (1)
  1. RISPERDAL [Suspect]
     Active Substance: RISPERIDONE
     Indication: SLEEP DISORDER
     Route: 048
     Dates: start: 201601, end: 201602

REACTIONS (3)
  - Product use issue [Unknown]
  - Off label use [Unknown]
  - Akathisia [Recovering/Resolving]

NARRATIVE: CASE EVENT DATE: 2016
